FAERS Safety Report 6740449-5 (Version None)
Quarter: 2010Q2

REPORT INFORMATION
  Report Type: 
  Country: None (occurrence: None)
  Receive Date: 20100525
  Receipt Date: 20100512
  Transmission Date: 20101027
  Serious: Yes (Life-Threatening, Hospitalization, Other)
  Sender: FDA-Public Use
  Company Number: TR-BAYER-201025012GPV

PATIENT
  Age: 74 Year
  Sex: Male

DRUGS (2)
  1. ASPIRIN [Suspect]
     Indication: PERIPHERAL ARTERIAL OCCLUSIVE DISEASE
     Dosage: DOSE WAS TRIPLED TO 300 MG/DAILY BEFORE DISCHARGE FOR THE REST OF HIS LIFE
  2. CLOPIDOGREL [Suspect]
     Indication: PERIPHERAL ARTERIAL OCCLUSIVE DISEASE
     Dosage: DOSE WAS DOUBLED TO 150 MG/DAILY BEFORE DISCHARGE FOR THE REST OF HIS LIFE

REACTIONS (5)
  - ILIAC ARTERY OCCLUSION [None]
  - MOBILITY DECREASED [None]
  - PAIN IN EXTREMITY [None]
  - PARAESTHESIA [None]
  - THROMBOSIS IN DEVICE [None]
